FAERS Safety Report 9254098 (Version 2)
Quarter: 2013Q2

REPORT INFORMATION
  Report Type: Spontaneous
  Country: US (occurrence: None)
  Receive Date: 20130422
  Receipt Date: 20130617
  Transmission Date: 20140414
  Serious: Yes (Hospitalization)
  Sender: FDA-Public Use
  Company Number: ACO_35561_2013

PATIENT
  Sex: Female

DRUGS (8)
  1. AMPYRA (DALFAMPRIDINE) TABLET, 10MG [Suspect]
     Indication: GAIT DISTURBANCE
  2. AMPYRA (DALFAMPRIDINE) TABLET, 10MG [Suspect]
     Indication: MULTIPLE SCLEROSIS
  3. TRAZODONE HCL (TRAZODONE HYDROCHLORIDE) [Concomitant]
  4. VITAMIN D3 (COLECALCIFEROL) [Concomitant]
  5. LOSARTAN (LOSARTAN POTASSIUM) [Concomitant]
  6. LEVOTHYROXINE SODIUM (LEVOTHYROXINE SODIUM) [Concomitant]
  7. LORATIDINE (LORATIDINE) [Concomitant]
  8. GILENYA (FINGOLIMOD HYDROCHLORIDE) [Concomitant]

REACTIONS (3)
  - Malaise [None]
  - Multiple sclerosis relapse [None]
  - Urinary tract infection [None]
